FAERS Safety Report 8890394 (Version 5)
Quarter: 2013Q2

REPORT INFORMATION
  Report Type: Spontaneous
  Country: US (occurrence: US)
  Receive Date: 20121106
  Receipt Date: 20130516
  Transmission Date: 20140414
  Serious: Yes (Hospitalization, Other)
  Sender: FDA-Public Use
  Company Number: US-009507513-1211USA001609

PATIENT
  Sex: Male
  Weight: 63.49 kg

DRUGS (11)
  1. FOSAMAX [Suspect]
     Indication: OSTEOPOROSIS PROPHYLAXIS
     Dosage: 70 MG, QW
     Route: 048
     Dates: start: 200406
  2. FOSAMAX [Suspect]
     Indication: OSTEOPENIA
  3. ALENDRONATE SODIUM [Suspect]
     Indication: OSTEOPOROSIS PROPHYLAXIS
     Dosage: UNK
     Route: 048
     Dates: start: 20080421
  4. ALENDRONATE SODIUM [Suspect]
     Indication: OSTEOPOROSIS
  5. VITAMINS (UNSPECIFIED) [Concomitant]
     Dosage: UNK
     Dates: start: 1980
  6. [THERAPY UNSPECIFIED] [Concomitant]
     Indication: HYPERTENSION
     Dosage: UNK
     Dates: start: 200106
  7. ALENDRONATE SODIUM [Suspect]
     Indication: OSTEOPOROSIS PROPHYLAXIS
     Dosage: UNK
     Dates: start: 20110930
  8. ALENDRONATE SODIUM [Suspect]
     Indication: OSTEOPOROSIS
  9. TRAMADOL HYDROCHLORIDE [Concomitant]
     Indication: SPINAL CORD INJURY
  10. PERCOCET [Concomitant]
     Indication: SPINAL CORD INJURY
  11. VICODIN [Concomitant]
     Indication: SPINAL CORD INJURY

REACTIONS (56)
  - Femur fracture [Unknown]
  - Femur fracture [Unknown]
  - Intramedullary rod insertion [Unknown]
  - Femur fracture [Unknown]
  - Humerus fracture [Unknown]
  - Tibia fracture [Unknown]
  - Sepsis [Unknown]
  - Urinary tract infection [Unknown]
  - Hypokalaemia [Recovered/Resolved]
  - Urinary tract infection pseudomonal [Unknown]
  - Anaemia [Unknown]
  - Accident [Unknown]
  - Fall [Unknown]
  - Mental status changes [Recovered/Resolved]
  - Hypoxia [Unknown]
  - Respiratory failure [Unknown]
  - Acidosis [Unknown]
  - Medical device implantation [Unknown]
  - Hypercapnia [Unknown]
  - Bradycardia [Unknown]
  - Convulsion [Unknown]
  - Low turnover osteopathy [Unknown]
  - Accident [Unknown]
  - Fall [Unknown]
  - Upper limb fracture [Unknown]
  - Accident [Unknown]
  - Foot fracture [Unknown]
  - Foot fracture [Unknown]
  - Orthostatic hypotension [Unknown]
  - Urinary tract infection [Unknown]
  - Electrocardiogram T wave amplitude decreased [Recovering/Resolving]
  - Nephrolithiasis [Unknown]
  - Renal cyst [Unknown]
  - Haemoglobin decreased [Unknown]
  - Platelet count decreased [Recovered/Resolved]
  - Wound infection bacterial [Unknown]
  - Haemorrhage urinary tract [Unknown]
  - Electrocardiogram repolarisation abnormality [Recovering/Resolving]
  - Haematuria [Unknown]
  - Hyperlipidaemia [Unknown]
  - Sleep apnoea syndrome [Unknown]
  - Pneumonia [Unknown]
  - Syncope [Unknown]
  - Hepatitis C [Unknown]
  - Hiatus hernia [Unknown]
  - Delirium [Unknown]
  - Therapy cessation [Unknown]
  - Hypokalaemia [Recovered/Resolved]
  - Hypernatraemia [Recovered/Resolved]
  - Electrocardiogram T wave inversion [Unknown]
  - Lung infiltration [Unknown]
  - Depressed level of consciousness [Unknown]
  - Hyperchloraemia [Unknown]
  - Depression [Unknown]
  - Constipation [Not Recovered/Not Resolved]
  - Oedema peripheral [Unknown]
